FAERS Safety Report 9196562 (Version 2)
Quarter: 2013Q2

REPORT INFORMATION
  Report Type: Spontaneous
  Country: MX (occurrence: MX)
  Receive Date: 20130328
  Receipt Date: 20130412
  Transmission Date: 20140414
  Serious: Yes (Other)
  Sender: FDA-Public Use
  Company Number: MX-TEVA-393980ISR

PATIENT
  Age: 15 Month
  Sex: Female

DRUGS (2)
  1. CEFTRIAXONE [Suspect]
     Indication: UROSEPSIS
     Dosage: 50 MG/KG DAILY;
     Route: 065
  2. CLINDAMYCIN [Concomitant]
     Indication: UROSEPSIS
     Dosage: 60 MG/KG DAILY;
     Route: 065

REACTIONS (1)
  - Cholelithiasis [Recovered/Resolved]
